FAERS Safety Report 4301413-9 (Version None)
Quarter: 2004Q1

REPORT INFORMATION
  Report Type: 
  Country: None (occurrence: None)
  Receive Date: 20040219
  Receipt Date: 20040206
  Transmission Date: 20041129
  Serious: Yes (Other)
  Sender: FDA-Public Use
  Company Number: 2002123492JP

PATIENT
  Age: 86 Year
  Sex: Female

DRUGS (6)
  1. XALATAN [Suspect]
     Indication: ANGLE CLOSURE GLAUCOMA
     Dosage: 1 GTT, QD, OPHTHALMIC
     Route: 047
     Dates: start: 19990723, end: 19990917
  2. SANPILO, 2% [Concomitant]
  3. TIMOPTOL, 0.5% [Concomitant]
  4. DIAMOX [Concomitant]
  5. ASPARA K (ASPARTATE POTASSIUM) [Concomitant]
  6. METHYCOBAL (MECOBALAMIN) [Concomitant]

REACTIONS (6)
  - CATARACT [None]
  - HYPERMETROPIA [None]
  - MACULAR OEDEMA [None]
  - OPTIC ATROPHY [None]
  - RETINAL HAEMORRHAGE [None]
  - VISUAL FIELD DEFECT [None]
